FAERS Safety Report 5727662-0 (Version None)
Quarter: 2008Q2

REPORT INFORMATION
  Report Type: 
  Country: None (occurrence: None)
  Receive Date: 20080505
  Receipt Date: 20080424
  Transmission Date: 20081010
  Serious: Yes (Other)
  Sender: FDA-Public Use
  Company Number: B0361415A

PATIENT
  Sex: Female

DRUGS (4)
  1. PAROXETINE HCL [Suspect]
     Route: 065
     Dates: start: 19991020
  2. DOTHIEPIN HYDROCHLORIDE [Concomitant]
  3. FLUANXOL [Concomitant]
  4. CITALOPRAM HYDROBROMIDE [Concomitant]
     Dates: start: 20061010

REACTIONS (14)
  - ABDOMINAL PAIN UPPER [None]
  - AGGRESSION [None]
  - ANXIETY [None]
  - ARTHRALGIA [None]
  - DEPRESSION [None]
  - DIZZINESS [None]
  - DRUG WITHDRAWAL SYNDROME [None]
  - FATIGUE [None]
  - HEADACHE [None]
  - INFLUENZA LIKE ILLNESS [None]
  - LETHARGY [None]
  - NIGHTMARE [None]
  - PANIC REACTION [None]
  - SUICIDAL IDEATION [None]
